FAERS Safety Report 6269142-2 (Version None)
Quarter: 2009Q3

REPORT INFORMATION
  Report Type: 
  Country: None (occurrence: None)
  Receive Date: 20090715
  Receipt Date: 20090709
  Transmission Date: 20100115
  Serious: Yes (Hospitalization)
  Sender: FDA-Public Use
  Company Number: GB-AMGEN-US355624

PATIENT
  Age: 61 Year
  Sex: Male

DRUGS (7)
  1. ENBREL [Suspect]
     Indication: RHEUMATOID ARTHRITIS
     Route: 042
     Dates: start: 20061001, end: 20090622
  2. TAMSULOSIN HCL [Concomitant]
     Indication: BENIGN PROSTATIC HYPERPLASIA
     Route: 048
  3. OMEPRAZOLE [Concomitant]
     Indication: PROPHYLAXIS
     Route: 048
  4. CO-DYDRAMOL [Concomitant]
     Indication: RHEUMATOID ARTHRITIS
     Route: 048
  5. CO-DYDRAMOL [Concomitant]
     Indication: ANALGESIA
  6. DICLOFENAC [Concomitant]
     Indication: RHEUMATOID ARTHRITIS
     Route: 048
  7. DICLOFENAC [Concomitant]
     Indication: ANALGESIA

REACTIONS (3)
  - ISCHAEMIC STROKE [None]
  - VERTIGO [None]
  - VISION BLURRED [None]
